FAERS Safety Report 7341497-7 (Version None)
Quarter: 2011Q1

REPORT INFORMATION
  Report Type: 
  Country: None (occurrence: None)
  Receive Date: 20110309
  Receipt Date: 20110302
  Transmission Date: 20110831
  Serious: Yes (Death, Life-Threatening)
  Sender: FDA-Public Use
  Company Number: JP-JNJFOC-20110302371

PATIENT
  Sex: Female

DRUGS (6)
  1. DOXORUBICIN HCL [Suspect]
     Route: 042
  2. DOXORUBICIN HCL [Suspect]
     Route: 042
  3. DOXORUBICIN HCL [Suspect]
     Indication: MALIGNANT PERITONEAL NEOPLASM
     Route: 042
  4. DOXORUBICIN HCL [Suspect]
     Route: 042
  5. DOXORUBICIN HCL [Suspect]
     Route: 042
  6. HEPARIN AND PREPARATIONS [Concomitant]
     Route: 041

REACTIONS (4)
  - INTERSTITIAL LUNG DISEASE [None]
  - MALIGNANT PERITONEAL NEOPLASM [None]
  - NEOPLASM MALIGNANT [None]
  - PALMAR-PLANTAR ERYTHRODYSAESTHESIA SYNDROME [None]
